FAERS Safety Report 7672862-6 (Version None)
Quarter: 2011Q3

REPORT INFORMATION
  Report Type: 
  Country: None (occurrence: None)
  Receive Date: 20110809
  Receipt Date: 20110712
  Transmission Date: 20111222
  Serious: Yes (Other)
  Sender: FDA-Public Use
  Company Number: PHHY2011CA60886

PATIENT
  Sex: Female

DRUGS (6)
  1. VITAMIN D [Concomitant]
  2. TRAMADOL HYDROCHLORIDE/ACETAMINOPHEN [Concomitant]
  3. CALCIUM CARBONATE [Concomitant]
  4. ZOLEDRONOC ACID [Suspect]
     Indication: OSTEOPOROSIS
     Route: 042
     Dates: start: 20101001
  5. NEXIUM [Concomitant]
  6. VOLTAREN [Concomitant]

REACTIONS (1)
  - NEPHROPATHY [None]
